FAERS Safety Report 19855000 (Version 2)
Quarter: 2021Q4

REPORT INFORMATION
  Report Type: Spontaneous
  Country: JP (occurrence: JP)
  Receive Date: 20210920
  Receipt Date: 20211122
  Transmission Date: 20220303
  Serious: Yes (Hospitalization, Other)
  Sender: FDA-Public Use
  Company Number: JP-SA-SAC20210916000201

PATIENT
  Age: 61 Year
  Sex: Female
  Weight: 41 kg

DRUGS (13)
  1. FLUOROURACIL [Suspect]
     Active Substance: FLUOROURACIL
     Indication: Rectal cancer
     Dosage: 400 MG/M2, BIW(DAY 1)
     Route: 040
  2. FLUOROURACIL [Suspect]
     Active Substance: FLUOROURACIL
     Dosage: 2400 MG(INFUSION, DAY 1-3)
  3. FLUOROURACIL [Suspect]
     Active Substance: FLUOROURACIL
     Dosage: UNK(REDUCED TO 70%)
  4. FLUOROURACIL [Suspect]
     Active Substance: FLUOROURACIL
     Dosage: 285 MG
     Route: 040
  5. FLUOROURACIL [Suspect]
     Active Substance: FLUOROURACIL
     Dosage: 1700 MG(INFUSION)
  6. OXALIPLATIN [Concomitant]
     Active Substance: OXALIPLATIN
     Indication: Rectal cancer
     Dosage: 85 MG/M2, BIW(DAY 1)
     Route: 041
  7. LEVOLEUCOVORIN CALCIUM [Concomitant]
     Active Substance: LEVOLEUCOVORIN CALCIUM
     Indication: Rectal cancer
     Dosage: 200 MG/M2, BIW(DAY 1)
     Route: 041
  8. IRINOTECAN HYDROCHLORIDE [Concomitant]
     Active Substance: IRINOTECAN HYDROCHLORIDE
     Dosage: UNK
  9. PANITUMUMAB [Concomitant]
     Active Substance: PANITUMUMAB
     Dosage: 6 MG/KG, QCY
  10. CAPECITABINE [Concomitant]
     Active Substance: CAPECITABINE
     Dosage: 2400 MG
  11. ESOMEPRAZOLE MAGNESIUM [Concomitant]
     Active Substance: ESOMEPRAZOLE MAGNESIUM
     Dosage: 20 MG
  12. URSODIOL [Concomitant]
     Active Substance: URSODIOL
     Dosage: 600 MG
  13. SODIUM FERROUS CITRATE [Concomitant]
     Active Substance: SODIUM FERROUS CITRATE
     Dosage: 100 MG

REACTIONS (8)
  - Hyperammonaemia [Recovered/Resolved]
  - Hepatitis C [Recovered/Resolved]
  - Constipation [Recovered/Resolved]
  - Depressed level of consciousness [Recovered/Resolved]
  - Asterixis [Recovered/Resolved]
  - Vomiting [Recovered/Resolved]
  - Hepatic failure [Recovered/Resolved]
  - Dehydration [Recovered/Resolved]
